FAERS Safety Report 11120197 (Version 1)
Quarter: 2015Q2

REPORT INFORMATION
  Report Type: Spontaneous
  Country: US (occurrence: US)
  Receive Date: 20150518
  Receipt Date: 20150518
  Transmission Date: 20150821
  Serious: Yes (Hospitalization, Other)
  Sender: FDA-Public Use
  Company Number: US-GLAXOSMITHKLINE-US2015GSK065478

PATIENT
  Sex: Male

DRUGS (4)
  1. VENTOLIN HFA [Suspect]
     Active Substance: ALBUTEROL SULFATE
     Indication: PRODUCT USED FOR UNKNOWN INDICATION
  2. COUMADIN [Suspect]
     Active Substance: WARFARIN SODIUM
  3. BREO ELLIPTA [Suspect]
     Active Substance: FLUTICASONE FUROATE\VILANTEROL TRIFENATATE
     Indication: PRODUCT USED FOR UNKNOWN INDICATION
     Route: 055
  4. DIGOXIN. [Suspect]
     Active Substance: DIGOXIN

REACTIONS (26)
  - Chronic obstructive pulmonary disease [Not Recovered/Not Resolved]
  - Atrial fibrillation [Not Recovered/Not Resolved]
  - Tricuspid valve incompetence [Unknown]
  - Stress [Unknown]
  - Acute respiratory failure [Not Recovered/Not Resolved]
  - Cardiac failure [Unknown]
  - Endocarditis [Unknown]
  - Cough [Unknown]
  - Heart rate increased [Recovered/Resolved]
  - Cardiac failure acute [Unknown]
  - Cardiac failure chronic [Unknown]
  - Steroid therapy [Unknown]
  - Dyspnoea [Unknown]
  - Hospitalisation [Recovered/Resolved]
  - Continuous positive airway pressure [Not Recovered/Not Resolved]
  - Bronchitis [Unknown]
  - Cardiac failure congestive [Unknown]
  - Hyperglycaemia [Unknown]
  - Aortic valve replacement [Unknown]
  - Respiratory failure [Unknown]
  - Productive cough [Unknown]
  - Hospice care [Not Recovered/Not Resolved]
  - Cardiomyopathy [Not Recovered/Not Resolved]
  - Carotid artery disease [Unknown]
  - Anaemia [Unknown]
  - Treatment noncompliance [Unknown]

NARRATIVE: CASE EVENT DATE: 2015
